FAERS Safety Report 16086168 (Version 2)
Quarter: 2019Q3

REPORT INFORMATION
  Report Type: Spontaneous
  Country: JP (occurrence: JP)
  Receive Date: 20190318
  Receipt Date: 20190805
  Transmission Date: 20191004
  Serious: No
  Sender: FDA-Public Use
  Company Number: JP-SA-2019SA073766

PATIENT
  Age: 78 Year
  Sex: Male

DRUGS (4)
  1. IRBESARTAN. [Suspect]
     Active Substance: IRBESARTAN
     Indication: HYPERTENSION
     Dosage: 100 MG, QD
     Route: 048
     Dates: start: 20190301, end: 20190311
  2. ALLELOCK [Concomitant]
     Active Substance: OLOPATADINE HYDROCHLORIDE
     Dosage: UNK
     Dates: start: 20190301, end: 20190313
  3. MEDICON [DEXTROMETHORPHAN HYDROBROMIDE;POTASSIUM CRESOLSULFONATE] [Concomitant]
  4. KLARICID [CLARITHROMYCIN] [Concomitant]
     Dosage: UNK
     Dates: start: 20190301, end: 20190313

REACTIONS (1)
  - Urticaria [Recovering/Resolving]

NARRATIVE: CASE EVENT DATE: 20190307
